FAERS Safety Report 17176773 (Version 3)
Quarter: 2025Q1

REPORT INFORMATION
  Report Type: Report from Study
  Country: US (occurrence: US)
  Receive Date: 20191219
  Receipt Date: 20250103
  Transmission Date: 20250409
  Serious: Yes (Hospitalization, Other)
  Sender: TAKEDA
  Company Number: US-SHIRE-US201943652

PATIENT
  Sex: Female
  Weight: 38.549 kg

DRUGS (2)
  1. MESALAMINE [Suspect]
     Active Substance: MESALAMINE
     Indication: Colitis ulcerative
     Dosage: 2.4 GRAM, QD
  2. MESALAMINE [Suspect]
     Active Substance: MESALAMINE

REACTIONS (12)
  - Road traffic accident [Unknown]
  - Cerebrovascular accident [Unknown]
  - Brain injury [Unknown]
  - Migraine [Unknown]
  - Vision blurred [Unknown]
  - Pain [Unknown]
  - Eructation [Unknown]
  - Depressed mood [Unknown]
  - Product packaging difficult to open [Unknown]
  - Stress [Unknown]
  - Product use issue [Unknown]
  - Muscle spasms [Unknown]
